FAERS Safety Report 4525857-5 (Version None)
Quarter: 2004Q4

REPORT INFORMATION
  Report Type: 
  Country: None (occurrence: None)
  Receive Date: 20041213
  Receipt Date: 20030605
  Transmission Date: 20050328
  Serious: Yes (Hospitalization, Disabling, Other)
  Sender: FDA-Public Use
  Company Number: US-MERCK-0306USA00758

PATIENT
  Age: 57 Year
  Sex: Female
  Weight: 128 kg

DRUGS (40)
  1. ALLEGRA [Concomitant]
     Route: 065
  2. TOPROL-XL [Concomitant]
     Route: 065
  3. PLAVIX [Concomitant]
     Route: 065
  4. PLAVIX [Concomitant]
     Route: 065
  5. LIPITOR [Concomitant]
     Route: 065
  6. ALBUTEROL [Concomitant]
     Route: 065
  7. GLUCOVANCE [Concomitant]
     Route: 065
  8. LASIX [Concomitant]
     Route: 065
  9. NAPROXEN [Concomitant]
     Route: 065
  10. CHLORAZEPATE [Concomitant]
     Route: 065
  11. VANCERIL [Concomitant]
     Route: 065
  12. ADVAIR DISKUS 100/50 [Concomitant]
     Route: 065
  13. DARVOCET-N 100 [Concomitant]
     Indication: NECK PAIN
     Route: 065
  14. KENALOG [Concomitant]
     Route: 030
     Dates: start: 20010424
  15. VICODIN [Concomitant]
     Route: 065
     Dates: start: 20010528
  16. AVELOX [Concomitant]
     Route: 065
  17. NASONEX [Concomitant]
     Route: 065
  18. SPIRONOLACTONE [Concomitant]
     Route: 065
  19. PREDNISONE [Concomitant]
     Route: 065
  20. VIOXX [Suspect]
     Indication: NECK PAIN
     Route: 048
  21. VIOXX [Suspect]
     Route: 048
  22. VIOXX [Suspect]
     Indication: BACK PAIN
     Route: 048
  23. VIOXX [Suspect]
     Route: 048
  24. GLUCOPHAGE [Concomitant]
     Route: 065
  25. EVISTA [Concomitant]
     Route: 065
  26. VASOTEC [Concomitant]
     Route: 065
  27. GLUCOTROL XL [Concomitant]
     Route: 065
  28. CLARITIN [Concomitant]
     Route: 065
  29. HYDROCHLOROTHIAZIDE AND TRIAMTERENE [Concomitant]
     Route: 065
  30. ASPIRIN [Concomitant]
     Route: 065
  31. ASPIRIN [Concomitant]
     Route: 065
  32. FLOVENT [Concomitant]
     Route: 065
  33. [THERAPY UNSPECIFIED] [Concomitant]
     Route: 065
  34. CALCIUM (UNSPECIFIED) [Concomitant]
     Route: 065
  35. TRANXENE [Concomitant]
     Route: 065
  36. ZOLOFT [Concomitant]
     Route: 065
  37. UNIVASC [Concomitant]
     Route: 065
  38. AVANDIA [Concomitant]
     Route: 065
  39. PROPACET 100 [Concomitant]
     Route: 065
  40. WELLBUTRIN XL [Concomitant]
     Route: 065

REACTIONS (31)
  - ABASIA [None]
  - ADVERSE EVENT [None]
  - ANGINA PECTORIS [None]
  - ANXIETY [None]
  - ARTHRALGIA [None]
  - ASPIRATION [None]
  - ASTHMA [None]
  - BACK DISORDER [None]
  - BLOOD PRESSURE INCREASED [None]
  - BRONCHITIS [None]
  - CHOLELITHIASIS [None]
  - CONVULSION [None]
  - DIPLOPIA [None]
  - DIZZINESS [None]
  - DRUG INEFFECTIVE [None]
  - DYSPNOEA [None]
  - ERYTHEMA [None]
  - EXCORIATION [None]
  - EYE SWELLING [None]
  - FACIAL PAIN [None]
  - FALL [None]
  - HEADACHE [None]
  - HOARSENESS [None]
  - MYOCARDIAL INFARCTION [None]
  - NECK INJURY [None]
  - OEDEMA PERIPHERAL [None]
  - PNEUMONIA [None]
  - SINUSITIS [None]
  - SOMNOLENCE [None]
  - SWELLING FACE [None]
  - TREMOR [None]
